FAERS Safety Report 4365587-6 (Version None)
Quarter: 2004Q2

REPORT INFORMATION
  Report Type: 
  Country: None (occurrence: None)
  Receive Date: 20040526
  Receipt Date: 20040510
  Transmission Date: 20050107
  Serious: Yes (Other)
  Sender: FDA-Public Use
  Company Number: AU-MERCK-0405AUS00095

PATIENT
  Age: 83 Year
  Sex: Male

DRUGS (6)
  1. FOSAMAX [Suspect]
     Indication: OSTEOPOROSIS
     Route: 048
     Dates: start: 20030101
  2. FUROSEMIDE [Concomitant]
     Route: 065
  3. POTASSIUM CHLORIDE [Concomitant]
     Route: 065
  4. PREDNISONE [Concomitant]
     Indication: LUNG NEOPLASM MALIGNANT
     Route: 048
     Dates: start: 19790101
  5. RAMIPRIL [Concomitant]
     Indication: CARDIAC DISORDER
     Route: 048
  6. VERAPAMIL HYDROCHLORIDE [Concomitant]
     Indication: CARDIAC DISORDER
     Route: 048
     Dates: start: 20010101

REACTIONS (4)
  - ARTHROPATHY [None]
  - FATIGUE [None]
  - HAEMOGLOBIN DECREASED [None]
  - MELAENA [None]
